FAERS Safety Report 24152917 (Version 1)
Quarter: 2024Q3

REPORT INFORMATION
  Report Type: Spontaneous
  Country: US (occurrence: US)
  Receive Date: 20240730
  Receipt Date: 20240730
  Transmission Date: 20241017
  Serious: Yes (Other)
  Sender: DR REDDYS
  Company Number: US-DRL-USA-LIT/USA/24/0010990

PATIENT
  Age: 24 Year
  Sex: Female

DRUGS (11)
  1. MEMANTINE [Suspect]
     Active Substance: MEMANTINE
     Indication: Complex regional pain syndrome
     Dosage: 5 MG UP-TITRATION EVERY WEEK TO 20 MG DAILY
  2. MELOXICAM [Suspect]
     Active Substance: MELOXICAM
     Indication: Pain
     Dosage: 15 MG DAILY PRN
  3. PREGABALIN [Suspect]
     Active Substance: PREGABALIN
     Indication: Complex regional pain syndrome
     Dosage: 200 MG TID
     Route: 048
  4. BACLOFEN [Suspect]
     Active Substance: BACLOFEN
     Indication: Complex regional pain syndrome
     Dosage: 10 MG TID AND UP-TITRATED OVER THE NEXT 3 MONTHS TO 20 MG TID
  5. ZICONOTIDE [Suspect]
     Active Substance: ZICONOTIDE
     Indication: Complex regional pain syndrome
     Dosage: AT THE RATE OF 0.5 ?G/D
  6. METHOCARBAMOL [Concomitant]
     Active Substance: METHOCARBAMOL
     Indication: Complex regional pain syndrome
     Dosage: 500 MG TID PRN
  7. GABAPENTIN [Concomitant]
     Active Substance: GABAPENTIN
     Indication: Complex regional pain syndrome
     Dosage: 600 MG 3 TIMES PER DAY (TID)
  8. DULOXETINE [Concomitant]
     Active Substance: DULOXETINE
     Indication: Complex regional pain syndrome
     Dosage: 90 MG DAILY
  9. ACETAMINOPHEN [Concomitant]
     Active Substance: ACETAMINOPHEN
     Indication: Complex regional pain syndrome
     Dosage: 1,000 MG TID AS NEEDED (PRN),
  10. LIDOCAINE [Concomitant]
     Active Substance: LIDOCAINE
     Indication: Complex regional pain syndrome
     Dosage: 5% TOPICAL PATCHES (12 HOURS ON AND 12 HOURS OFF).
     Route: 061
  11. MAGNESIUM OXIDE [Concomitant]
     Active Substance: MAGNESIUM OXIDE
     Indication: Complex regional pain syndrome
     Dosage: 400 MG DAILY
     Route: 061

REACTIONS (4)
  - Exposure during pregnancy [Unknown]
  - Therapeutic product effect incomplete [Unknown]
  - Product use in unapproved indication [Unknown]
  - Normal newborn [Recovered/Resolved]
